FAERS Safety Report 5964022-1 (Version None)
Quarter: 2008Q4

REPORT INFORMATION
  Report Type: 
  Country: None (occurrence: None)
  Receive Date: 20081124
  Receipt Date: 20081110
  Transmission Date: 20090506
  Serious: Yes (Other)
  Sender: FDA-Public Use
  Company Number: JP-JNJCH-2008055328

PATIENT
  Sex: Female

DRUGS (4)
  1. CETIRIZINE HYDROCHLORIDE [Suspect]
     Indication: RHINITIS ALLERGIC
     Dosage: TEXT:10 MG
     Route: 048
     Dates: start: 20041209, end: 20050106
  2. AMLODIPINE BESYLATE [Suspect]
     Indication: HYPERTENSION
     Dosage: TEXT:5 MG
     Route: 048
     Dates: start: 20041209, end: 20041221
  3. ALLOPURINOL [Suspect]
     Indication: HYPERURICAEMIA
     Dosage: TEXT:100 MG
     Route: 048
     Dates: start: 20041209, end: 20050106
  4. NILVADIPINE [Suspect]
     Indication: HYPERTENSION
     Dosage: TEXT:8 MG
     Route: 048
     Dates: start: 20041222, end: 20050106

REACTIONS (1)
  - HEPATIC FUNCTION ABNORMAL [None]
